FAERS Safety Report 8462375-6 (Version None)
Quarter: 2012Q2

REPORT INFORMATION
  Report Type: 
  Country: None (occurrence: None)
  Receive Date: 20120625
  Receipt Date: 20120613
  Transmission Date: 20120825
  Serious: No
  Sender: FDA-Public Use
  Company Number: US-PFIZER INC-2012142816

PATIENT
  Sex: Male
  Weight: 74.83 kg

DRUGS (4)
  1. LYRICA [Suspect]
     Indication: SCIATICA
     Dosage: UNK, 2X/DAY
     Route: 048
     Dates: start: 20120602
  2. SIMVASTATIN [Concomitant]
     Dosage: UNK
  3. XANAX [Concomitant]
     Indication: ANXIETY
     Dosage: UNK, AS NEEDED
  4. NEXIUM [Concomitant]
     Dosage: UNK

REACTIONS (7)
  - TREMOR [None]
  - PARAESTHESIA [None]
  - INSOMNIA [None]
  - SOMNOLENCE [None]
  - DRUG INEFFECTIVE [None]
  - DYSGRAPHIA [None]
  - FEELING JITTERY [None]
